FAERS Safety Report 7676447-7 (Version None)
Quarter: 2011Q3

REPORT INFORMATION
  Report Type: 
  Country: None (occurrence: None)
  Receive Date: 20110809
  Receipt Date: 20110809
  Transmission Date: 20111222
  Serious: Yes (Other)
  Sender: FDA-Public Use
  Company Number: None

PATIENT
  Sex: Male
  Weight: 97.5234 kg

DRUGS (1)
  1. CELEBREX [Suspect]
     Indication: ARTHRITIS
     Dosage: 1 CAPSULE ONCE A DAY ORAL
     Route: 048
     Dates: start: 20110321, end: 20110515

REACTIONS (2)
  - JAUNDICE [None]
  - HEPATIC ENZYME INCREASED [None]
